FAERS Safety Report 17041766 (Version 1)
Quarter: 2019Q4

REPORT INFORMATION
  Report Type: Spontaneous
  Country: JP (occurrence: JP)
  Receive Date: 20191118
  Receipt Date: 20191118
  Transmission Date: 20200122
  Serious: Yes (Life-Threatening)
  Sender: FDA-Public Use
  Company Number: JP-ROCHE-2465944

PATIENT
  Age: 59 Year
  Sex: Female

DRUGS (3)
  1. EVEROLIMUS. [Concomitant]
     Active Substance: EVEROLIMUS
  2. RITUXAN [Suspect]
     Active Substance: RITUXIMAB
     Indication: PROPHYLAXIS AGAINST TRANSPLANT REJECTION
     Dosage: 100 MG
     Route: 041
  3. BORTEZOMIB. [Concomitant]
     Active Substance: BORTEZOMIB

REACTIONS (3)
  - Pneumatosis intestinalis [Unknown]
  - Intentional product use issue [Unknown]
  - Off label use [Unknown]
